FAERS Safety Report 5759557-0 (Version None)
Quarter: 2008Q2

REPORT INFORMATION
  Report Type: 
  Country: None (occurrence: None)
  Receive Date: 20080604
  Receipt Date: 20080604
  Transmission Date: 20081010
  Serious: Yes (Death, Disabling)
  Sender: FDA-Public Use
  Company Number: None

PATIENT
  Sex: Male
  Weight: 0.64 kg

DRUGS (1)
  1. NEOPROFEN [Suspect]
     Indication: PATENT DUCTUS ARTERIOSUS
     Dosage: 10MG/KG X1 042; 5MG/KG  Q24 HRS X 2 DOSES  042
     Dates: start: 20080416, end: 20080418

REACTIONS (3)
  - INTESTINAL PERFORATION [None]
  - NEONATAL HYPOTENSION [None]
  - PERITONEAL FLUID ANALYSIS ABNORMAL [None]
